FAERS Safety Report 5754333-7 (Version None)
Quarter: 2008Q2

REPORT INFORMATION
  Report Type: 
  Country: None (occurrence: None)
  Receive Date: 20080530
  Receipt Date: 20070614
  Transmission Date: 20081010
  Serious: No
  Sender: FDA-Public Use
  Company Number: US-ABBOTT-07P-163-0372895-00

PATIENT
  Sex: Female
  Weight: 90.9 kg

DRUGS (4)
  1. GENGRAF [Suspect]
     Indication: RENAL TRANSPLANT
     Route: 048
  2. STEROIDS [Concomitant]
     Indication: DRUG USE FOR UNKNOWN INDICATION
  3. BLOOD PRESSURE MEDS [Concomitant]
     Indication: DRUG USE FOR UNKNOWN INDICATION
  4. ANTIDEPRESSANTS [Concomitant]
     Indication: DRUG USE FOR UNKNOWN INDICATION

REACTIONS (1)
  - DRUG LEVEL DECREASED [None]
